FAERS Safety Report 9078173 (Version 1)
Quarter: 2013Q1

REPORT INFORMATION
  Report Type: Report from Study
  Country: US (occurrence: US)
  Receive Date: 20130130
  Receipt Date: 20130130
  Transmission Date: 20140127
  Serious: No
  Sender: FDA-Public Use
  Company Number: US-ABBOTT-12P-163-0959270-00

PATIENT
  Age: 53 Year
  Sex: Male

DRUGS (7)
  1. HUMIRA 40 MG/0.8 ML PEN [Suspect]
     Indication: PSORIASIS
     Dosage: LOADING DOSE (RESULTED IN MISFIRE)
     Dates: start: 20120627
  2. HUMIRA 40 MG/0.8 ML PEN [Suspect]
     Dates: start: 20120704
  3. AMLODIPINE [Concomitant]
     Indication: BLOOD PRESSURE
  4. LITHIUM [Concomitant]
     Indication: BIPOLAR DISORDER
  5. KLONOPIN [Concomitant]
     Indication: BIPOLAR DISORDER
  6. RISPERDAL [Concomitant]
     Indication: BIPOLAR DISORDER
  7. WELLBUTRIN [Concomitant]
     Indication: BIPOLAR DISORDER

REACTIONS (3)
  - Device malfunction [Unknown]
  - Injection site haemorrhage [Recovered/Resolved]
  - Injection site bruising [Recovered/Resolved]
